FAERS Safety Report 19218657 (Version 2)
Quarter: 2021Q2

REPORT INFORMATION
  Report Type: Report from Study
  Country: IL (occurrence: IL)
  Receive Date: 20210505
  Receipt Date: 20210602
  Transmission Date: 20210717
  Serious: Yes (Hospitalization, Other)
  Sender: FDA-Public Use
  Company Number: IL-IPSEN BIOPHARMACEUTICALS, INC.-2018-19830

PATIENT
  Age: 61 Year
  Sex: Female
  Weight: 72 kg

DRUGS (14)
  1. SOMATULINE AUTOGEL [Suspect]
     Active Substance: LANREOTIDE ACETATE
     Indication: PANCREATIC NEUROENDOCRINE TUMOUR
     Route: 058
     Dates: start: 20180927
  2. COUMADIN [Concomitant]
     Active Substance: WARFARIN SODIUM
     Dosage: 20 MINUTES BEFORE MEALS , 1?2 PER DAY
  3. FORXIGA [Concomitant]
     Active Substance: DAPAGLIFLOZIN
  4. MICROPIRIN [Concomitant]
     Active Substance: ASPIRIN
  5. OMEPRADEX [Concomitant]
     Active Substance: OMEPRAZOLE
     Dosage: ONCE OR TWICE A PER DAY
  6. STATOR [Concomitant]
  7. DIGOXIN. [Concomitant]
     Active Substance: DIGOXIN
     Dosage: HALF TABLET A DAY, 20 MINUTES BEFORE MEALS, 1 ? 2 PER DAY
  8. FUSID [Concomitant]
  9. LANTUS [Concomitant]
     Active Substance: INSULIN GLARGINE
     Dosage: ONCE OR TWICE A PER DAY
     Route: 058
  10. COLOTAL [Concomitant]
     Dosage: 1X 2PER DAY
  11. VECTOR [Concomitant]
     Active Substance: VALSARTAN
  12. ALDACTONE [Concomitant]
     Active Substance: SPIRONOLACTONE
  13. JANUET [Concomitant]
     Active Substance: METFORMIN HYDROCHLORIDE\SITAGLIPTIN PHOSPHATE
     Dosage: 50/1000 TABLET (50 MG + 1000 MG), 2 TAB
  14. VERAPRESS SR [Concomitant]
     Dosage: HALF TABLET PER DAY.

REACTIONS (20)
  - Dizziness [Recovered/Resolved]
  - Chills [Not Recovered/Not Resolved]
  - Atrial fibrillation [Unknown]
  - Gait disturbance [Not Recovered/Not Resolved]
  - Nausea [Unknown]
  - Hypogonadism [Not Recovered/Not Resolved]
  - Fall [Not Recovered/Not Resolved]
  - Tricuspid valve incompetence [Unknown]
  - Balance disorder [Not Recovered/Not Resolved]
  - Tooth disorder [Not Recovered/Not Resolved]
  - Condition aggravated [Not Recovered/Not Resolved]
  - Loss of personal independence in daily activities [Not Recovered/Not Resolved]
  - Fatigue [Not Recovered/Not Resolved]
  - Asthenia [Unknown]
  - Dyspnoea [Recovered/Resolved]
  - Pain in extremity [Not Recovered/Not Resolved]
  - Neck pain [Not Recovered/Not Resolved]
  - Chest pain [Unknown]
  - Hypothyroidism [Not Recovered/Not Resolved]
  - Metastases to pituitary gland [Not Recovered/Not Resolved]

NARRATIVE: CASE EVENT DATE: 20181219
